FAERS Safety Report 10223041 (Version 2)
Quarter: 2014Q2

REPORT INFORMATION
  Report Type: Report from Study
  Country: SD (occurrence: SD)
  Receive Date: 20140607
  Receipt Date: 20140607
  Transmission Date: 20141212
  Serious: Yes (Death, Other)
  Sender: FDA-Public Use
  Company Number: PHHY2013SD017767

PATIENT
  Age: 70 Year
  Sex: Male
  Weight: 65 kg

DRUGS (4)
  1. GLIVEC [Suspect]
     Indication: CHRONIC MYELOID LEUKAEMIA
     Dosage: 600 MG, DAILY
     Route: 048
     Dates: start: 20120802, end: 20121208
  2. GLIVEC [Suspect]
     Dosage: 800 MG, DAILY
  3. IRON [Concomitant]
     Dosage: UNK UKN, UNK
  4. MULTIVITAMINS [Concomitant]

REACTIONS (10)
  - Death [Fatal]
  - Blast crisis in myelogenous leukaemia [Unknown]
  - Thrombocytopenia [Unknown]
  - Anaemia [Unknown]
  - Platelet count decreased [Unknown]
  - Chronic myeloid leukaemia transformation [Unknown]
  - Pancytopenia [Recovered/Resolved with Sequelae]
  - Blood disorder [Unknown]
  - No therapeutic response [Unknown]
  - White blood cell count increased [Unknown]
